FAERS Safety Report 12481651 (Version 2)
Quarter: 2016Q3

REPORT INFORMATION
  Report Type: Spontaneous
  Country: JP (occurrence: JP)
  Receive Date: 20160620
  Receipt Date: 20160707
  Transmission Date: 20161109
  Serious: Yes (Other)
  Sender: FDA-Public Use
  Company Number: JP-BAYER-2016-114132

PATIENT
  Sex: Female

DRUGS (2)
  1. BAYASPIRIN [Suspect]
     Active Substance: ASPIRIN
     Indication: CARDIOLIPIN ANTIBODY POSITIVE
  2. BAYASPIRIN [Suspect]
     Active Substance: ASPIRIN
     Indication: THROMBOSIS PROPHYLAXIS
     Dosage: 100 MG, QD
     Route: 048
     Dates: start: 20150105, end: 20150729

REACTIONS (3)
  - Abortion [Recovered/Resolved]
  - Off label use [Unknown]
  - Maternal exposure during pregnancy [Recovered/Resolved]
